FAERS Safety Report 13092709 (Version 1)
Quarter: 2017Q1

REPORT INFORMATION
  Report Type: Spontaneous
  Country: US (occurrence: US)
  Receive Date: 20170105
  Receipt Date: 20170105
  Transmission Date: 20170428
  Serious: No
  Sender: FDA-Public Use
  Company Number: None

PATIENT
  Age: 15 Year
  Sex: Female
  Weight: 63.56 kg

DRUGS (2)
  1. LAMICTAL [Suspect]
     Active Substance: LAMOTRIGINE
     Indication: BIPOLAR DISORDER
     Route: 048
     Dates: start: 2014, end: 2016
  2. ARIPIPRAZOLE 15 MG [Suspect]
     Active Substance: ARIPIPRAZOLE
     Indication: BIPOLAR DISORDER
     Route: 048
     Dates: start: 2014

REACTIONS (7)
  - Affective disorder [None]
  - Fatigue [None]
  - Suicide attempt [None]
  - Drug ineffective [None]
  - Product substitution issue [None]
  - Anxiety [None]
  - Intentional self-injury [None]

NARRATIVE: CASE EVENT DATE: 20161221
